FAERS Safety Report 19554106 (Version 1)
Quarter: 2021Q3

REPORT INFORMATION
  Report Type: Spontaneous
  Country: US (occurrence: US)
  Receive Date: 20210715
  Receipt Date: 20210715
  Transmission Date: 20211014
  Serious: Yes (Other)
  Sender: FDA-Public Use
  Company Number: US-MYLANLABS-2021M1042077

PATIENT
  Age: 10 Year
  Sex: Female

DRUGS (20)
  1. DECITABINE. [Suspect]
     Active Substance: DECITABINE
     Indication: ACUTE MYELOID LEUKAEMIA
     Dosage: UNK
     Route: 065
  2. VINORELBINE [Suspect]
     Active Substance: VINORELBINE TARTRATE
     Indication: ACUTE MYELOID LEUKAEMIA
     Dosage: UNK
     Route: 065
  3. VINORELBINE [Suspect]
     Active Substance: VINORELBINE TARTRATE
     Indication: LEUKAEMIA RECURRENT
  4. CLOFARABINE. [Suspect]
     Active Substance: CLOFARABINE
     Indication: LEUKAEMIA RECURRENT
  5. DECITABINE. [Suspect]
     Active Substance: DECITABINE
     Indication: KMT2A GENE MUTATION
  6. CLOFARABINE. [Suspect]
     Active Substance: CLOFARABINE
     Indication: KMT2A GENE MUTATION
  7. THIOTEPA. [Suspect]
     Active Substance: THIOTEPA
     Indication: ACUTE MYELOID LEUKAEMIA
     Dosage: UNK
     Route: 065
  8. GEMTUZUMAB [Suspect]
     Active Substance: GEMTUZUMAB OZOGAMICIN
     Indication: LEUKAEMIA RECURRENT
  9. TOPOTECAN [Suspect]
     Active Substance: TOPOTECAN HYDROCHLORIDE
     Indication: LEUKAEMIA RECURRENT
  10. CLOFARABINE. [Suspect]
     Active Substance: CLOFARABINE
     Indication: ACUTE MYELOID LEUKAEMIA
     Dosage: UNK
     Route: 065
  11. GEMTUZUMAB [Suspect]
     Active Substance: GEMTUZUMAB OZOGAMICIN
     Indication: ACUTE MYELOID LEUKAEMIA
     Dosage: UNK
     Route: 065
  12. GEMTUZUMAB [Suspect]
     Active Substance: GEMTUZUMAB OZOGAMICIN
     Indication: KMT2A GENE MUTATION
  13. TOPOTECAN [Suspect]
     Active Substance: TOPOTECAN HYDROCHLORIDE
     Indication: ACUTE MYELOID LEUKAEMIA
  14. THIOTEPA. [Suspect]
     Active Substance: THIOTEPA
     Indication: KMT2A GENE MUTATION
  15. BUSULFAN. [Concomitant]
     Active Substance: BUSULFAN
     Indication: BONE MARROW CONDITIONING REGIMEN
     Dosage: UNK
     Route: 065
  16. FLUDARABINE [Concomitant]
     Active Substance: FLUDARABINE PHOSPHATE
     Indication: BONE MARROW CONDITIONING REGIMEN
     Dosage: UNK
     Route: 065
  17. VINORELBINE [Suspect]
     Active Substance: VINORELBINE TARTRATE
     Indication: KMT2A GENE MUTATION
  18. DECITABINE. [Suspect]
     Active Substance: DECITABINE
     Indication: LEUKAEMIA RECURRENT
  19. THIOTEPA. [Suspect]
     Active Substance: THIOTEPA
     Indication: LEUKAEMIA RECURRENT
  20. TOPOTECAN [Suspect]
     Active Substance: TOPOTECAN HYDROCHLORIDE
     Indication: KMT2A GENE MUTATION
     Dosage: UNK
     Route: 065

REACTIONS (1)
  - Drug ineffective [Unknown]
